FAERS Safety Report 5293501-8 (Version None)
Quarter: 2007Q2

REPORT INFORMATION
  Report Type: 
  Country: None (occurrence: None)
  Receive Date: 20070411
  Receipt Date: 20070405
  Transmission Date: 20071010
  Serious: Yes (Hospitalization)
  Sender: FDA-Public Use
  Company Number: US-GLAXOSMITHKLINE-A0646096A

PATIENT
  Sex: Male

DRUGS (2)
  1. ARIXTRA [Suspect]
     Dosage: 2.5MG UNKNOWN
     Route: 058
  2. HEPARIN [Concomitant]

REACTIONS (2)
  - CARDIAC DISORDER [None]
  - CORONARY ARTERY BYPASS [None]
